FAERS Safety Report 7878546-3 (Version None)
Quarter: 2011Q4

REPORT INFORMATION
  Report Type: 
  Country: None (occurrence: None)
  Receive Date: 20111014
  Receipt Date: 20110517
  Transmission Date: 20120403
  Serious: Yes (Hospitalization)
  Sender: FDA-Public Use
  Company Number: 1000020984

PATIENT
  Age: 80 Year
  Sex: Female

DRUGS (5)
  1. VYTORIN [Concomitant]
  2. LEXAPRO [Suspect]
     Indication: DEPRESSION
     Dosage: 10 MG (10 MG, 1 IN 1 D), ORAL
     Route: 048
     Dates: start: 20110301
  3. CLONAZEPAM [Concomitant]
  4. ASPIRIN [Concomitant]
  5. CARBAMAZEPINE [Concomitant]

REACTIONS (3)
  - HYPONATRAEMIA [None]
  - ASTHENIA [None]
  - FATIGUE [None]
